FAERS Safety Report 14480991 (Version 2)
Quarter: 2018Q1

REPORT INFORMATION
  Report Type: Report from Study
  Country: PT (occurrence: PT)
  Receive Date: 20180202
  Receipt Date: 20180321
  Transmission Date: 20180509
  Serious: Yes (Other)
  Sender: FDA-Public Use
  Company Number: PT-JNJFOC-20180132885

PATIENT

DRUGS (1)
  1. IMBRUVICA [Suspect]
     Active Substance: IBRUTINIB
     Indication: CHRONIC LYMPHOCYTIC LEUKAEMIA
     Route: 048

REACTIONS (27)
  - Oral candidiasis [Unknown]
  - Anaemia [Unknown]
  - Haematoma [Unknown]
  - Thrombocytopenia [Unknown]
  - Neutropenia [Unknown]
  - Conjunctivitis [Unknown]
  - Decreased appetite [Unknown]
  - Off label use [Unknown]
  - Skin lesion [Unknown]
  - Urinary tract infection [Unknown]
  - Phlebitis [Unknown]
  - Ecchymosis [Unknown]
  - Respiratory tract infection [Unknown]
  - Headache [Unknown]
  - Diarrhoea [Unknown]
  - Mucosal inflammation [Unknown]
  - Rash pruritic [Unknown]
  - Nausea [Unknown]
  - Product use in unapproved indication [Unknown]
  - Secondary immunodeficiency [Unknown]
  - Acute kidney injury [Unknown]
  - Arthritis [Unknown]
  - Skin infection [Unknown]
  - Mouth haemorrhage [Unknown]
  - Herpes virus infection [Unknown]
  - Abdominal distension [Unknown]
  - Gastroenteritis [Unknown]
